FAERS Safety Report 4810322-8 (Version None)
Quarter: 2005Q4

REPORT INFORMATION
  Report Type: 
  Country: None (occurrence: None)
  Receive Date: 20051026
  Receipt Date: 20051014
  Transmission Date: 20060501
  Serious: Yes (Other)
  Sender: FDA-Public Use
  Company Number: US-ROCHE-421501

PATIENT
  Age: 53 Year
  Sex: Female

DRUGS (7)
  1. RIBAVIRIN [Suspect]
     Indication: DRUG USE FOR UNKNOWN INDICATION
     Route: 048
     Dates: start: 20030615
  2. INTERFERON ALFA-2A [Suspect]
     Indication: DRUG USE FOR UNKNOWN INDICATION
     Route: 058
     Dates: start: 20030615
  3. PEGASYS [Suspect]
     Indication: DRUG USE FOR UNKNOWN INDICATION
     Route: 058
     Dates: start: 20050926, end: 20051015
  4. COPEGUS [Suspect]
     Indication: DRUG USE FOR UNKNOWN INDICATION
     Route: 048
     Dates: start: 20050926, end: 20051015
  5. VITAMIN B12 INJECTION [Concomitant]
     Indication: PERNICIOUS ANAEMIA
  6. LACTULOSE [Concomitant]
     Dosage: INDICATION - NORMALISE AMMONIA LEVELS
  7. FLAGYL [Concomitant]
     Dosage: INDICATION - NORMALISE BOWEL MOVEMENTS

REACTIONS (9)
  - BACK PAIN [None]
  - CARDIAC DISORDER [None]
  - HAEMOPTYSIS [None]
  - HEPATIC ENCEPHALOPATHY [None]
  - INCREASED UPPER AIRWAY SECRETION [None]
  - PRODUCTIVE COUGH [None]
  - RED BLOOD CELL COUNT DECREASED [None]
  - SPUTUM DISCOLOURED [None]
  - WHITE BLOOD CELL COUNT DECREASED [None]
